FAERS Safety Report 7710807-0 (Version None)
Quarter: 2011Q3

REPORT INFORMATION
  Report Type: 
  Country: None (occurrence: None)
  Receive Date: 20110825
  Receipt Date: 20110816
  Transmission Date: 20111222
  Serious: Yes (Hospitalization)
  Sender: FDA-Public Use
  Company Number: GB-ELI_LILLY_AND_COMPANY-GB201108005278

PATIENT
  Age: 67 Year
  Sex: Male

DRUGS (2)
  1. GEMCITABINE HYDROCHLORIDE [Suspect]
     Dosage: UNK, UNKNOWN
     Route: 042
     Dates: start: 20110301
  2. CISPLATIN [Suspect]
     Dosage: UNK, UNKNOWN
     Route: 042
     Dates: start: 20110301

REACTIONS (1)
  - INFECTION [None]
